FAERS Safety Report 9008621 (Version 1)
Quarter: 2013Q1

REPORT INFORMATION
  Report Type: Spontaneous
  Country: US (occurrence: US)
  Receive Date: 20130111
  Receipt Date: 20130111
  Transmission Date: 20140127
  Serious: No
  Sender: FDA-Public Use
  Company Number: US-MYLANLABS-2012S1024526

PATIENT
  Age: 80 Year
  Sex: Female

DRUGS (1)
  1. IBANDRONATE SODIUM TABLETS [Suspect]
     Indication: BONE DISORDER
     Route: 048
     Dates: start: 2012

REACTIONS (2)
  - Drug ineffective [Not Recovered/Not Resolved]
  - Bone scan abnormal [Not Recovered/Not Resolved]
